FAERS Safety Report 4622313-0 (Version None)
Quarter: 2005Q1

REPORT INFORMATION
  Report Type: 
  Country: None (occurrence: None)
  Receive Date: 20050328
  Receipt Date: 20050316
  Transmission Date: 20050727
  Serious: Yes (Other)
  Sender: FDA-Public Use
  Company Number: 2005037582

PATIENT
  Sex: Female

DRUGS (1)
  1. PROVERA [Suspect]
     Indication: OLIGOMENORRHOEA
     Dosage: 10 MG (10 MG DAILY) ORAL
     Route: 048

REACTIONS (3)
  - DRUG EXPOSURE DURING PREGNANCY [None]
  - PREGNANCY [None]
  - TREATMENT NONCOMPLIANCE [None]
